FAERS Safety Report 8453701 (Version 3)
Quarter: 2014Q1

REPORT INFORMATION
  Report Type: Report from Study
  Country: US (occurrence: US)
  Receive Date: 20120312
  Receipt Date: 20140320
  Transmission Date: 20141002
  Serious: Yes (Hospitalization)
  Sender: FDA-Public Use
  Company Number: US-GLAXOSMITHKLINE-Z0014518A

PATIENT
  Age: 61 Year
  Sex: Male
  Weight: 128.4 kg

DRUGS (6)
  1. OFATUMUMAB [Suspect]
     Indication: DIFFUSE LARGE B-CELL LYMPHOMA RECURRENT
     Dosage: 1000MG CYCLIC
     Route: 042
     Dates: start: 20120224, end: 20120316
  2. DEXAMETHASONE [Suspect]
     Indication: DIFFUSE LARGE B-CELL LYMPHOMA RECURRENT
     Dosage: 40MG EVERY 3 WEEKS
     Route: 048
     Dates: start: 20120225, end: 20120228
  3. CISPLATIN [Suspect]
     Indication: DIFFUSE LARGE B-CELL LYMPHOMA RECURRENT
     Dosage: 100MGM2 EVERY 3 WEEKS
     Route: 042
     Dates: start: 20120225, end: 20120226
  4. CYTARABINE [Suspect]
     Indication: DIFFUSE LARGE B-CELL LYMPHOMA RECURRENT
     Dosage: 4GM2 EVERY 3 WEEKS
     Route: 042
     Dates: start: 20120226, end: 20120226
  5. BENICAR [Suspect]
     Indication: HYPERTENSION
     Dosage: 20MG PER DAY
     Route: 048
     Dates: end: 20120302
  6. METFORMIN [Concomitant]
     Indication: HYPERGLYCAEMIA
     Dosage: 1000MG PER DAY
     Route: 048
     Dates: start: 2009, end: 20120302

REACTIONS (3)
  - Renal failure acute [Recovered/Resolved]
  - Tumour lysis syndrome [Recovered/Resolved]
  - Diarrhoea [Recovered/Resolved]
